FAERS Safety Report 20813197 (Version 1)
Quarter: 2022Q2

REPORT INFORMATION
  Report Type: Spontaneous
  Country: US (occurrence: None)
  Receive Date: 20220510
  Receipt Date: 20220510
  Transmission Date: 20220721
  Serious: Yes (Death)
  Sender: FDA-Public Use
  Company Number: None

PATIENT
  Age: 78 Year
  Sex: Male
  Weight: 80.29 kg

DRUGS (20)
  1. IMATINIB [Suspect]
     Active Substance: IMATINIB
     Indication: Chronic myeloid leukaemia
     Dosage: 400MG EVERYDAY ORAL?
     Route: 048
     Dates: start: 202109, end: 20220310
  2. AMLODIPINE BESYLATE [Concomitant]
     Active Substance: AMLODIPINE BESYLATE
  3. ASPIRIN [Concomitant]
     Active Substance: ASPIRIN
  4. ATORVASTATIN CALCIUM [Concomitant]
  5. LOSARTAN POTASSIUM [Concomitant]
  6. BAYER CONTOUR BLOOD GLUCOSE [Concomitant]
  7. MICROLET LANCETS [Concomitant]
  8. BD INSULIN SYRINGE U/F [Concomitant]
  9. ONE TOUCH VERLO [Concomitant]
  10. DIAZEPAM [Concomitant]
     Active Substance: DIAZEPAM
  11. PREGABALIN [Concomitant]
     Active Substance: PREGABALIN
  12. ERGOCALCIFEROL [Concomitant]
     Active Substance: ERGOCALCIFEROL
  13. TRAMADOL HCL [Concomitant]
     Active Substance: TRAMADOL HYDROCHLORIDE
  14. ESOMEPRAZOLE MAGNESIUM [Concomitant]
  15. TRAZODONE HCL [Concomitant]
  16. FENOFIBRATE [Concomitant]
  17. VITAMIN D2 [Concomitant]
     Active Substance: ERGOCALCIFEROL
  18. FUROSEMIDE [Concomitant]
     Active Substance: FUROSEMIDE
  19. HUMULIN R [Concomitant]
     Active Substance: INSULIN HUMAN
  20. LEVEMIR [Concomitant]
     Active Substance: INSULIN DETEMIR

REACTIONS (1)
  - Death [None]
